FAERS Safety Report 4347194-4 (Version None)
Quarter: 2004Q2

REPORT INFORMATION
  Report Type: 
  Country: None (occurrence: None)
  Receive Date: 20040422
  Receipt Date: 20040401
  Transmission Date: 20050107
  Serious: Yes (Other)
  Sender: FDA-Public Use
  Company Number: GBS040414690

PATIENT
  Age: 35 Year

DRUGS (1)
  1. FLUOXETINE HCL [Suspect]
     Indication: DEPRESSION

REACTIONS (1)
  - CEREBRAL HAEMORRHAGE [None]
